FAERS Safety Report 11148720 (Version 2)
Quarter: 2015Q3

REPORT INFORMATION
  Report Type: Spontaneous
  Country: MY (occurrence: MY)
  Receive Date: 20150529
  Receipt Date: 20150707
  Transmission Date: 20151125
  Serious: Yes (Death, Hospitalization)
  Sender: FDA-Public Use
  Company Number: MY-PFIZER INC-2015179582

PATIENT
  Age: 59 Year
  Sex: Male

DRUGS (4)
  1. CARDURA [Concomitant]
     Active Substance: DOXAZOSIN MESYLATE
     Dosage: 4 MG, UNK
  2. FERROUS FUMARATE [Concomitant]
     Active Substance: FERROUS FUMARATE
     Dosage: 20 MG, UNK
  3. SUTENT [Suspect]
     Active Substance: SUNITINIB MALATE
     Indication: METASTATIC RENAL CELL CARCINOMA
     Dosage: 50 MG, 1X/DAY
     Route: 048
     Dates: start: 201112
  4. AMLODIPINE [Concomitant]
     Active Substance: AMLODIPINE BESYLATE
     Dosage: 5 MG, UNK

REACTIONS (7)
  - Disease progression [Fatal]
  - Dyspnoea [Unknown]
  - Metastatic renal cell carcinoma [Fatal]
  - Haematuria [Unknown]
  - Lethargy [Unknown]
  - Dysuria [Unknown]
  - Urinary retention [Unknown]
